FAERS Safety Report 9384232 (Version 2)
Quarter: 2013Q3

REPORT INFORMATION
  Report Type: Spontaneous
  Country: JP (occurrence: JP)
  Receive Date: 20130705
  Receipt Date: 20130718
  Transmission Date: 20140515
  Serious: Yes (Hospitalization)
  Sender: FDA-Public Use
  Company Number: JP-009507513-1307JPN001463

PATIENT
  Age: 47 Year
  Sex: Male
  Weight: 89 kg

DRUGS (13)
  1. PEGINTRON [Suspect]
     Indication: CHRONIC HEPATITIS C
     Dosage: 1.5 MICROGRAM PER KILOGRAM, UNK
     Route: 058
  2. PEGINTRON [Suspect]
     Dosage: 100 MICROGRAM, UNK
     Route: 058
     Dates: start: 20130626
  3. REBETOL [Suspect]
     Indication: CHRONIC HEPATITIS C
     Dosage: 1 G, QD
     Route: 048
     Dates: start: 20130509, end: 20130621
  4. REBETOL [Suspect]
     Dosage: 600 MG, QD
     Route: 048
     Dates: start: 20130625
  5. TELAVIC [Suspect]
     Indication: CHRONIC HEPATITIS C
     Dosage: 2.25 G, QD
     Route: 048
     Dates: start: 20130509, end: 20130621
  6. URSO [Concomitant]
     Indication: CHRONIC HEPATITIS C
     Dosage: 600 MG, QD, FORMULATION:POR
     Route: 048
     Dates: end: 20130527
  7. GLYCYRON [Concomitant]
     Indication: CHRONIC HEPATITIS C
     Dosage: 3 DF, QD
     Route: 048
     Dates: end: 20130527
  8. BAYASPIRIN [Concomitant]
     Dosage: 100 MG, QD, FORMULATION:POR
     Route: 048
  9. PARIET [Concomitant]
     Dosage: FORMULATION:POR, 10 MG, QD
     Route: 048
  10. UNISIA [Concomitant]
     Dosage: 1 DF, QD
     Route: 048
  11. NEO-MINOPHAGEN C [Concomitant]
     Indication: CHRONIC HEPATITIS C
     Dosage: 40 ML, QD
     Route: 042
     Dates: start: 20130510, end: 20130522
  12. LAC-B [Concomitant]
     Dosage: 3 G, QD, FORMULATION: POR
     Route: 048
     Dates: start: 20130605
  13. LOPEMIN [Concomitant]
     Dosage: FORMULATION: POR, PRN
     Route: 048
     Dates: start: 20130612

REACTIONS (1)
  - Pancreatitis acute [Not Recovered/Not Resolved]
